FAERS Safety Report 7710689-7 (Version None)
Quarter: 2011Q3

REPORT INFORMATION
  Report Type: 
  Country: None (occurrence: None)
  Receive Date: 20110825
  Receipt Date: 20110822
  Transmission Date: 20111222
  Serious: No
  Sender: FDA-Public Use
  Company Number: US-PFIZER INC-2011195119

PATIENT
  Sex: Male
  Weight: 88.9 kg

DRUGS (3)
  1. CELEBREX [Suspect]
     Indication: PROPHYLAXIS
     Dosage: 200 MG, 1X/DAY
     Route: 048
     Dates: start: 20110722, end: 20110808
  2. FEBUXOSTAT [Suspect]
     Indication: GOUT
     Dosage: 40 MG, EVERY OTHER DAY
     Route: 048
     Dates: start: 20110722, end: 20110801
  3. FEBUXOSTAT [Suspect]
     Dosage: 40 MG, 1X/DAY
     Route: 048
     Dates: start: 20110802

REACTIONS (2)
  - RASH [None]
  - PRURITUS [None]
